FAERS Safety Report 20263960 (Version 1)
Quarter: 2021Q4

REPORT INFORMATION
  Report Type: Other
  Country: US (occurrence: US)
  Receive Date: 20211231
  Receipt Date: 20211231
  Transmission Date: 20220303
  Serious: No
  Sender: FDA-Public Use
  Company Number: US-NEUROCRINE BIOSCIENCES INC.-2021NBI07362

PATIENT

DRUGS (3)
  1. INGREZZA [Suspect]
     Active Substance: VALBENAZINE
     Indication: Tardive dyskinesia
     Dosage: 80 MILLIGRAM, QD
     Route: 048
     Dates: start: 202108
  2. INGREZZA [Suspect]
     Active Substance: VALBENAZINE
     Dosage: 20 MILLIGRAM, QD
     Route: 048
  3. BENZTROPINE [Concomitant]
     Active Substance: BENZTROPINE

REACTIONS (3)
  - Somnolence [Recovered/Resolved]
  - Therapeutic response unexpected [Unknown]
  - Prescribed underdose [Unknown]

NARRATIVE: CASE EVENT DATE: 20210101
